FAERS Safety Report 7141188-1 (Version None)
Quarter: 2010Q4

REPORT INFORMATION
  Report Type: 
  Country: None (occurrence: None)
  Receive Date: 20101202
  Receipt Date: 20101202
  Transmission Date: 20110411
  Serious: Yes (Life-Threatening, Hospitalization, Other)
  Sender: FDA-Public Use
  Company Number: None

PATIENT
  Age: 43 Year
  Sex: Female
  Weight: 65.7716 kg

DRUGS (2)
  1. HALOPERIDOL [Suspect]
     Indication: SCHIZOPHRENIA
     Dosage: 4 WEEKS 100MG 4 WEEKS
     Dates: start: 20001002
  2. BENZTROPINE 0.5MG [Suspect]
     Dosage: 1 TABLET TWICE A DAY 2XADAY
     Dates: start: 20001013

REACTIONS (19)
  - ASTHENIA [None]
  - BALANCE DISORDER [None]
  - CHILLS [None]
  - CONTUSION [None]
  - DYSKINESIA [None]
  - DYSPHAGIA [None]
  - GAIT DISTURBANCE [None]
  - HAEMORRHAGE [None]
  - HEART RATE DECREASED [None]
  - HEART RATE INCREASED [None]
  - MUSCLE SPASMS [None]
  - MUSCLE TWITCHING [None]
  - MUSCULOSKELETAL STIFFNESS [None]
  - NEURALGIA [None]
  - OROPHARYNGEAL PAIN [None]
  - PAIN [None]
  - SPEECH DISORDER [None]
  - TREMOR [None]
  - VISUAL IMPAIRMENT [None]
